FAERS Safety Report 8727446 (Version 2)
Quarter: 2012Q4

REPORT INFORMATION
  Report Type: 
  Country: US (occurrence: US)
  Receive Date: 20120816
  Receipt Date: 20121227
  Transmission Date: 20130627
  Serious: No
  Sender: FDA-Public Use
  Company Number: US-ASTRAZENECA-2012SE55907

PATIENT
  Age: 80 Year
  Sex: Male
  Weight: 63.5 kg

DRUGS (8)
  1. NEXIUM [Suspect]
     Indication: GASTRIC DISORDER
     Route: 048
     Dates: start: 2006
  2. NEXIUM [Suspect]
     Indication: GASTRITIS
     Route: 048
     Dates: start: 2006
  3. PRANDIMET [Concomitant]
     Indication: DIABETES MELLITUS
  4. JANUVIA [Concomitant]
     Indication: DIABETES MELLITUS
  5. ACTOS [Concomitant]
     Indication: DIABETES MELLITUS
  6. SIMVASTATIN [Concomitant]
     Indication: BLOOD CHOLESTEROL ABNORMAL
  7. SYNTHROID [Concomitant]
     Indication: THYROID DISORDER
  8. ZETIA [Concomitant]
     Indication: BLOOD CHOLESTEROL ABNORMAL

REACTIONS (6)
  - Thyroid disorder [Unknown]
  - Dyspepsia [Unknown]
  - Eructation [Unknown]
  - Abdominal pain upper [Unknown]
  - Off label use [Unknown]
  - Drug dose omission [Unknown]
